FAERS Safety Report 6324785-2 (Version None)
Quarter: 2009Q3

REPORT INFORMATION
  Report Type: 
  Country: None (occurrence: None)
  Receive Date: 20090824
  Receipt Date: 20090505
  Transmission Date: 20100115
  Serious: No
  Sender: FDA-Public Use
  Company Number: US-ABBOTT-09P-163-0571667-00

PATIENT
  Sex: Male
  Weight: 74.456 kg

DRUGS (5)
  1. NIASPAN [Suspect]
     Indication: BLOOD CHOLESTEROL INCREASED
     Route: 048
  2. ASPIRIN [Concomitant]
     Indication: FLUSHING
     Route: 048
     Dates: start: 20090504
  3. ASPIRIN [Concomitant]
     Indication: PROPHYLAXIS
  4. URSADOL [Concomitant]
     Indication: LIVER DISORDER
     Route: 048
  5. CRESTOR [Concomitant]
     Indication: BLOOD CHOLESTEROL INCREASED
     Route: 048

REACTIONS (3)
  - HOT FLUSH [None]
  - PRURITUS [None]
  - SKIN BURNING SENSATION [None]
